FAERS Safety Report 23068104 (Version 3)
Quarter: 2024Q2

REPORT INFORMATION
  Report Type: Report from Study
  Country: CA (occurrence: CA)
  Receive Date: 20231016
  Receipt Date: 20240621
  Transmission Date: 20240715
  Serious: Yes (Death, Hospitalization, Other)
  Sender: FDA-Public Use
  Company Number: CA-SANDOZ-SDZ2023CA033857

PATIENT
  Age: 85 Year
  Sex: Male

DRUGS (2)
  1. HYRIMOZ [Suspect]
     Active Substance: ADALIMUMAB-ADAZ
     Indication: Pyoderma gangrenosum
     Dosage: 40 MG, Q2W
     Route: 058
     Dates: start: 20230921
  2. PREDNISONE [Suspect]
     Active Substance: PREDNISONE
     Indication: Pyoderma gangrenosum
     Dosage: 10 MG
     Route: 065

REACTIONS (5)
  - Death [Fatal]
  - Hospitalisation [Recovered/Resolved]
  - Gastritis [Unknown]
  - Muscular weakness [Unknown]
  - Off label use [Unknown]

NARRATIVE: CASE EVENT DATE: 20231101
